FAERS Safety Report 20950494 (Version 1)
Quarter: 2022Q2

REPORT INFORMATION
  Report Type: Spontaneous
  Country: CN (occurrence: None)
  Receive Date: 20220613
  Receipt Date: 20220613
  Transmission Date: 20220720
  Serious: Yes (Other)
  Sender: FDA-Public Use
  Company Number: CN-MICRO LABS LIMITED-ML2022-02542

PATIENT
  Age: 25 Year
  Sex: Female

DRUGS (2)
  1. CLINDAMYCIN [Suspect]
     Active Substance: CLINDAMYCIN
     Route: 042
  2. BUPIVACAINE [Suspect]
     Active Substance: BUPIVACAINE

REACTIONS (6)
  - Circulatory collapse [Unknown]
  - Respiratory failure [Unknown]
  - Hypoxia [Unknown]
  - Anaphylactic reaction [Unknown]
  - Dyspnoea [Unknown]
  - Cyanosis [Unknown]
